FAERS Safety Report 6123781-8 (Version None)
Quarter: 2009Q1

REPORT INFORMATION
  Report Type: 
  Country: None (occurrence: None)
  Receive Date: 20090318
  Receipt Date: 20090318
  Transmission Date: 20090719
  Serious: No
  Sender: FDA-Public Use
  Company Number: None

PATIENT
  Age: 57 Year
  Sex: Male
  Weight: 64.32 kg

DRUGS (1)
  1. LORAZEPAM [Suspect]
     Dosage: 4 MG OTHER IM
     Route: 030
     Dates: start: 20080824, end: 20080824

REACTIONS (2)
  - CONFUSIONAL STATE [None]
  - FALL [None]
